FAERS Safety Report 17455490 (Version 1)
Quarter: 2020Q1

REPORT INFORMATION
  Report Type: Spontaneous
  Country: US (occurrence: US)
  Receive Date: 20200211
  Receipt Date: 20200211
  Transmission Date: 20200409
  Serious: Yes (Hospitalization, Disabling)
  Sender: FDA-Public Use
  Company Number: None

PATIENT
  Age: 91 Year
  Sex: Female
  Weight: 72.57 kg

DRUGS (17)
  1. ASPIRIN. [Concomitant]
     Active Substance: ASPIRIN
  2. CENTRUM SILVER [Concomitant]
     Active Substance: MINERALS\VITAMINS
  3. LINAGLIPTIN [Concomitant]
     Active Substance: LINAGLIPTIN
  4. MELATONIN [Concomitant]
     Active Substance: MELATONIN
  5. VITAMIN D [Concomitant]
     Active Substance: VITAMIN D NOS
  6. MAGNESIUM [Concomitant]
     Active Substance: MAGNESIUM
  7. CLOPIDOGREL [Suspect]
     Active Substance: CLOPIDOGREL BISULFATE
     Indication: CEREBROVASCULAR ACCIDENT
     Dosage: ?          QUANTITY:4 DF DOSAGE FORM;?
     Route: 048
     Dates: start: 20190125, end: 20190205
  8. METFORMIN [Concomitant]
     Active Substance: METFORMIN HYDROCHLORIDE
  9. GLIPIZIDE ER [Concomitant]
     Active Substance: GLIPIZIDE
  10. LISINOPRIL. [Concomitant]
     Active Substance: LISINOPRIL
  11. HUMALOG [Concomitant]
     Active Substance: INSULIN LISPRO
  12. NYSTATIN. [Concomitant]
     Active Substance: NYSTATIN
  13. PROVASTIN [Concomitant]
  14. LANSOPRAZOLE. [Concomitant]
     Active Substance: LANSOPRAZOLE
  15. SENNA [Concomitant]
     Active Substance: SENNA LEAF\SENNOSIDES\SENNOSIDES A AND B
  16. DOCUSATE SODIUM. [Concomitant]
     Active Substance: DOCUSATE SODIUM
  17. MULTIVITAMIN WITH MINERALS [Concomitant]
     Active Substance: MINERALS\VITAMINS

REACTIONS (6)
  - Dysarthria [None]
  - Cerebrovascular accident [None]
  - Thrombosis [None]
  - Vascular pseudoaneurysm [None]
  - Drug level decreased [None]
  - Hemiparesis [None]

NARRATIVE: CASE EVENT DATE: 20190204
